FAERS Safety Report 21725546 (Version 1)
Quarter: 2022Q4

REPORT INFORMATION
  Report Type: Spontaneous
  Country: EG (occurrence: EG)
  Receive Date: 20221214
  Receipt Date: 20221214
  Transmission Date: 20230113
  Serious: No
  Sender: FDA-Public Use
  Company Number: EG-ALKEM LABORATORIES LIMITED-EG-ALKEM-2022-07916

PATIENT
  Age: 62 Year
  Sex: Female

DRUGS (4)
  1. MYCOPHENOLATE MOFETIL [Suspect]
     Active Substance: MYCOPHENOLATE MOFETIL
     Indication: Thrombotic microangiopathy
     Dosage: 1 GRAM, BID
     Route: 065
     Dates: start: 2015
  2. MYCOPHENOLATE MOFETIL [Suspect]
     Active Substance: MYCOPHENOLATE MOFETIL
     Indication: Glomerulonephritis membranoproliferative
     Dosage: UNK
     Route: 065
     Dates: start: 2015
  3. PREDNISONE [Suspect]
     Active Substance: PREDNISONE
     Indication: Thrombotic microangiopathy
     Dosage: UNK
     Route: 065
     Dates: start: 2015
  4. PREDNISONE [Suspect]
     Active Substance: PREDNISONE
     Indication: Glomerulonephritis membranoproliferative
     Dosage: 60 MILLIGRAM PER DAY
     Route: 065
     Dates: start: 2015

REACTIONS (2)
  - Disease recurrence [Unknown]
  - Diarrhoea [Recovered/Resolved]
